FAERS Safety Report 8857607 (Version 2)
Quarter: 2012Q4

REPORT INFORMATION
  Report Type: 
  Country: FR (occurrence: FR)
  Receive Date: 20121024
  Receipt Date: 20121127
  Transmission Date: 20130627
  Serious: Yes (Hospitalization)
  Sender: FDA-Public Use
  Company Number: FR-BMSGILMSD-2012-0063274

PATIENT
  Age: 32 Year
  Sex: Female

DRUGS (11)
  1. ATRIPLA [Suspect]
     Indication: HIV INFECTION
     Dosage: UNK
     Dates: start: 20120614, end: 20120623
  2. TRUVADA [Suspect]
     Indication: HIV INFECTION
     Dosage: UNK
     Dates: start: 20120518, end: 20120520
  3. PREZISTA [Suspect]
     Indication: HIV INFECTION
     Dosage: UNK
     Dates: start: 20120519, end: 20120522
  4. NORVIR [Suspect]
     Indication: HIV INFECTION
     Dosage: UNK
     Dates: start: 20120518, end: 20120522
  5. RIMIFON [Suspect]
     Indication: LYMPH NODE TUBERCULOSIS
     Dosage: UNK
     Dates: start: 20120525, end: 20120622
  6. RIFADINE [Suspect]
     Indication: LYMPH NODE TUBERCULOSIS
     Dosage: UNK
     Dates: start: 20120525, end: 20120622
  7. DEXAMBUTOL [Suspect]
     Indication: LYMPH NODE TUBERCULOSIS
     Dosage: UNK
     Dates: start: 20120525, end: 20120622
  8. PIRILENE [Suspect]
     Indication: LYMPH NODE TUBERCULOSIS
     Dosage: UNK
     Dates: start: 20120525, end: 20120622
  9. SUSTIVA [Concomitant]
     Dosage: UNK
     Dates: start: 20120614, end: 20120619
  10. EMTRIVA [Concomitant]
     Dosage: UNK
     Dates: start: 20120614, end: 20120619
  11. VIREAD [Concomitant]
     Dosage: UNK
     Dates: start: 20120614, end: 20120619

REACTIONS (2)
  - Renal tubular disorder [Recovered/Resolved]
  - Pyrexia [Not Recovered/Not Resolved]
